FAERS Safety Report 5574121-4 (Version None)
Quarter: 2007Q4

REPORT INFORMATION
  Report Type: 
  Country: None (occurrence: None)
  Receive Date: 20071221
  Receipt Date: 20071212
  Transmission Date: 20080405
  Serious: Yes (Other)
  Sender: FDA-Public Use
  Company Number: 2007-04154

PATIENT
  Age: 56 Year
  Sex: 0

DRUGS (3)
  1. VELCADE [Suspect]
     Indication: MANTLE CELL LYMPHOMA
     Dosage: 130 MG/M2
  2. RITUXIMAB [Concomitant]
  3. DEXAMETHASONE TAB [Concomitant]

REACTIONS (2)
  - BRONCHIOLITIS [None]
  - ROAD TRAFFIC ACCIDENT [None]
